FAERS Safety Report 14168827 (Version 26)
Quarter: 2020Q4

REPORT INFORMATION
  Report Type: Report from Study
  Country: CO (occurrence: CO)
  Receive Date: 20171107
  Receipt Date: 20201121
  Transmission Date: 20210113
  Serious: Yes (Hospitalization, Other)
  Sender: FDA-Public Use
  Company Number: PHHY2017CO161464

PATIENT
  Age: 76 Year
  Sex: Female
  Weight: 70 kg

DRUGS (12)
  1. REVOLADE [Suspect]
     Active Substance: ELTROMBOPAG
     Dosage: 25 MG, QD
     Route: 048
     Dates: start: 20170906
  2. REVOLADE [Suspect]
     Active Substance: ELTROMBOPAG
     Dosage: QOD
     Route: 048
  3. SILYMARIN [Concomitant]
     Active Substance: DIETARY SUPPLEMENT\HERBALS\MILK THISTLE
     Indication: PRODUCT USED FOR UNKNOWN INDICATION
     Dosage: 150 MG
     Route: 065
  4. REVOLADE [Suspect]
     Active Substance: ELTROMBOPAG
     Dosage: 50 MG, QD
     Route: 048
  5. LOSARTAN. [Suspect]
     Active Substance: LOSARTAN
     Indication: BLOOD PRESSURE ABNORMAL
  6. REVOLADE [Suspect]
     Active Substance: ELTROMBOPAG
     Indication: IMMUNE THROMBOCYTOPENIA
     Dosage: 25 MG, UNK
     Route: 048
     Dates: start: 20170724
  7. REVOLADE [Suspect]
     Active Substance: ELTROMBOPAG
     Dosage: 25 MG, QOD
     Route: 048
  8. LOSARTAN. [Suspect]
     Active Substance: LOSARTAN
     Indication: TENSION
     Dosage: 50 MG, QD
     Route: 048
  9. VITAMIIN C [Concomitant]
     Active Substance: ASCORBIC ACID
     Indication: PRODUCT USED FOR UNKNOWN INDICATION
     Dosage: UNK
     Route: 065
  10. REVOLADE [Suspect]
     Active Substance: ELTROMBOPAG
     Dosage: 25 MG, QOD (EVERY OTHER DAY)
     Route: 048
  11. REVOLADE [Suspect]
     Active Substance: ELTROMBOPAG
     Dosage: 25 MG, (MONDAY, WEDNESDAY, THURSDAY AND SUNDAY)
     Route: 048
  12. FORT E [Concomitant]
     Indication: PRODUCT USED FOR UNKNOWN INDICATION
     Dosage: UNK (DROPS)
     Route: 065

REACTIONS (19)
  - Hepatic neoplasm [Unknown]
  - Platelet count increased [Unknown]
  - Asthenia [Unknown]
  - Hypothyroidism [Unknown]
  - Influenza [Recovered/Resolved]
  - Diarrhoea [Unknown]
  - Headache [Unknown]
  - Ill-defined disorder [Unknown]
  - Liver disorder [Unknown]
  - Nausea [Unknown]
  - Tooth injury [Unknown]
  - Discouragement [Unknown]
  - Cartilage injury [Unknown]
  - Malaise [Unknown]
  - Secretion discharge [Unknown]
  - Platelet count decreased [Unknown]
  - Feeling abnormal [Unknown]
  - Gait disturbance [Unknown]
  - Pain [Unknown]

NARRATIVE: CASE EVENT DATE: 20190126
